FAERS Safety Report 9727422 (Version 1)
Quarter: 2013Q4

REPORT INFORMATION
  Report Type: Spontaneous
  Country: US (occurrence: US)
  Receive Date: 20131203
  Receipt Date: 20131203
  Transmission Date: 20140711
  Serious: Yes (Hospitalization, Other)
  Sender: FDA-Public Use
  Company Number: US-ACTAVIS-2013-21596

PATIENT
  Age: 43 Year
  Sex: Male
  Weight: 57 kg

DRUGS (4)
  1. NORCO (UNKNOWN) (WATSON LABORATORIES) [Suspect]
     Indication: PAIN
     Dosage: UNK
     Dates: start: 20130705
  2. HUMIRA [Suspect]
     Indication: COLITIS ULCERATIVE
     Dosage: 160 MG, ONCE A MONTH
     Dates: start: 201305
  3. ASCOLIN [Concomitant]
     Indication: PRODUCT USED FOR UNKNOWN INDICATION
     Dosage: UNK, UNKNOWN
     Route: 065
  4. XANAX [Concomitant]
     Indication: PRODUCT USED FOR UNKNOWN INDICATION
     Dosage: UNK, UNKNOWN
     Route: 065

REACTIONS (6)
  - Rectal haemorrhage [Recovered/Resolved]
  - Tendon rupture [Unknown]
  - Influenza [Recovered/Resolved]
  - Arthralgia [Unknown]
  - Gastric disorder [Unknown]
  - Feeling hot [Unknown]
